FAERS Safety Report 15941609 (Version 1)
Quarter: 2019Q1

REPORT INFORMATION
  Report Type: Spontaneous
  Country: US (occurrence: US)
  Receive Date: 20190208
  Receipt Date: 20190208
  Transmission Date: 20190417
  Serious: Yes (Hospitalization, Other)
  Sender: FDA-Public Use
  Company Number: US-009507513-1902USA000199

PATIENT
  Age: 62 Year
  Sex: Female
  Weight: 68.04 kg

DRUGS (1)
  1. ZOCOR [Suspect]
     Active Substance: SIMVASTATIN
     Indication: BLOOD CHOLESTEROL
     Dosage: 40 MILLIGRAM, ONCE A DAY (QD)
     Route: 048

REACTIONS (2)
  - Hip arthroplasty [Unknown]
  - Hip arthroplasty [Recovered/Resolved]

NARRATIVE: CASE EVENT DATE: 201507
